FAERS Safety Report 17143402 (Version 1)
Quarter: 2019Q4

REPORT INFORMATION
  Report Type: Spontaneous
  Country: IL (occurrence: IL)
  Receive Date: 20191211
  Receipt Date: 20191211
  Transmission Date: 20200122
  Serious: Yes (Other)
  Sender: FDA-Public Use
  Company Number: IL-AMERICAN REGENT INC-20190378

PATIENT
  Age: 52 Year
  Sex: Female

DRUGS (2)
  1. VENOFER [Suspect]
     Active Substance: IRON SUCROSE
     Dosage: 2 AMPOULES (2 DF, 2 IN 1 WEEK) EVERY WEEK FOR FIVE WEEKS
     Route: 042
  2. VENOFER [Suspect]
     Active Substance: IRON SUCROSE
     Indication: PRODUCT USED FOR UNKNOWN INDICATION
     Dosage: 2 AMPOULES (2 DF, 2 IN 1 WEEK) EVERY WEEK FOR FIVE WEEKS
     Route: 042
     Dates: start: 2014

REACTIONS (4)
  - Uterine polyp [Unknown]
  - Hypothalamo-pituitary disorder [Unknown]
  - Blood prolactin increased [Unknown]
  - Intestinal polyp [Recovered/Resolved]

NARRATIVE: CASE EVENT DATE: 2017
